FAERS Safety Report 9297569 (Version 2)
Quarter: 2013Q2

REPORT INFORMATION
  Report Type: Spontaneous
  Country: US (occurrence: US)
  Receive Date: 20130520
  Receipt Date: 20130520
  Transmission Date: 20140414
  Serious: No
  Sender: FDA-Public Use
  Company Number: US-MYLANLABS-2012S1017194

PATIENT
  Age: 58 Year
  Sex: Female
  Weight: 80.74 kg

DRUGS (3)
  1. ESTRADIOL [Suspect]
     Indication: HORMONE REPLACEMENT THERAPY
     Dosage: USING 1 1/2 TABLETS
     Route: 048
     Dates: start: 201205, end: 201206
  2. ATENOLOL [Concomitant]
     Indication: HYPERTENSION
     Route: 048
  3. THYROID HORMONES [Concomitant]
     Indication: THYROID DISORDER
     Route: 048

REACTIONS (5)
  - Drug ineffective [Recovered/Resolved]
  - Dysphonia [Recovered/Resolved]
  - Hirsutism [Recovered/Resolved]
  - Hyperhidrosis [Recovered/Resolved]
  - Skin odour abnormal [Recovered/Resolved]
